FAERS Safety Report 21310758 (Version 1)
Quarter: 2022Q3

REPORT INFORMATION
  Report Type: Spontaneous
  Country: US (occurrence: None)
  Receive Date: 20220909
  Receipt Date: 20220909
  Transmission Date: 20221027
  Serious: Yes (Life-Threatening, Other)
  Sender: FDA-Public Use
  Company Number: US-ROCHE-3175121

PATIENT
  Age: 64 Year
  Sex: Male
  Weight: 48.7 kg

DRUGS (13)
  1. CATHFLO ACTIVASE [Suspect]
     Active Substance: ALTEPLASE
     Indication: Device occlusion
     Route: 065
     Dates: start: 20220822
  2. CATHFLO ACTIVASE [Suspect]
     Active Substance: ALTEPLASE
     Dosage: ADMINISTERED VIA A PICC LINE AND WITHIN AN HOUR
     Dates: start: 20220903, end: 20220903
  3. LOVENOX [Concomitant]
     Active Substance: ENOXAPARIN SODIUM
     Indication: Thrombosis prophylaxis
  4. TENEX [Concomitant]
     Active Substance: GUANFACINE HYDROCHLORIDE
     Indication: Blood pressure abnormal
  5. MAXZIDE [Concomitant]
     Active Substance: HYDROCHLOROTHIAZIDE\TRIAMTERENE
     Dosage: 25/37.5MG
  6. IBUPROFEN [Concomitant]
     Active Substance: IBUPROFEN
     Indication: Pain
  7. NOVOLOG [Concomitant]
     Active Substance: INSULIN ASPART
     Indication: Type 1 diabetes mellitus
     Dosage: SHORT ACTING
  8. LEVEMIR [Concomitant]
     Active Substance: INSULIN DETEMIR
     Indication: Type 1 diabetes mellitus
  9. LISINOPRIL [Concomitant]
     Active Substance: LISINOPRIL
  10. MORPHINE [Concomitant]
     Active Substance: MORPHINE
     Indication: Pain
  11. POTASSIUM [Concomitant]
     Active Substance: POTASSIUM
  12. VANCOMYCIN [Concomitant]
     Active Substance: VANCOMYCIN
  13. PERCOCET [Concomitant]
     Active Substance: ACETAMINOPHEN\OXYCODONE HYDROCHLORIDE
     Indication: Pain
     Dosage: 5/325MG

REACTIONS (2)
  - Pulse absent [Recovered/Resolved]
  - Seizure [Recovered/Resolved]

NARRATIVE: CASE EVENT DATE: 20220903
